FAERS Safety Report 13006885 (Version 2)
Quarter: 2016Q4

REPORT INFORMATION
  Report Type: Spontaneous
  Country: US (occurrence: US)
  Receive Date: 20161207
  Receipt Date: 20161221
  Transmission Date: 20170207
  Serious: Yes (Death, Hospitalization, Other)
  Sender: FDA-Public Use
  Company Number: US-SAOL THERAPEUTICS-2016SAO01168

PATIENT
  Age: 64 Year
  Sex: Male

DRUGS (3)
  1. BACLOFEN. [Suspect]
     Active Substance: BACLOFEN
     Indication: PAIN
     Dosage: 109.92 ?G, \DAY
     Route: 037
  2. FENTANYL. [Suspect]
     Active Substance: FENTANYL
     Dosage: 275 ?G, \DAY
     Route: 037
  3. BACLOFEN. [Suspect]
     Active Substance: BACLOFEN
     Indication: POST LAMINECTOMY SYNDROME

REACTIONS (7)
  - Endotracheal intubation [Unknown]
  - Drug withdrawal syndrome [Fatal]
  - Off label use [Unknown]
  - Implant site infection [Unknown]
  - Cerebrovascular accident [Fatal]
  - Staphylococcal infection [Unknown]
  - Impaired healing [Unknown]

NARRATIVE: CASE EVENT DATE: 201611
